FAERS Safety Report 7707071-5 (Version None)
Quarter: 2011Q3

REPORT INFORMATION
  Report Type: 
  Country: None (occurrence: None)
  Receive Date: 20110824
  Receipt Date: 20110818
  Transmission Date: 20111222
  Serious: No
  Sender: FDA-Public Use
  Company Number: US-PFIZER INC-2007036599

PATIENT

DRUGS (2)
  1. NEURONTIN [Suspect]
     Indication: NECK INJURY
     Dates: start: 20010101
  2. NEURONTIN [Suspect]
     Indication: BACK INJURY

REACTIONS (2)
  - HEADACHE [None]
  - AMNESIA [None]
